FAERS Safety Report 8902726 (Version 4)
Quarter: 2013Q3

REPORT INFORMATION
  Report Type: Report from Study
  Country: DE (occurrence: DE)
  Receive Date: 20121112
  Receipt Date: 20130702
  Transmission Date: 20140515
  Serious: Yes (Hospitalization)
  Sender: FDA-Public Use
  Company Number: PHHO2012DE016111

PATIENT
  Age: 49 Year
  Sex: Female

DRUGS (1)
  1. FTY [Suspect]
     Dosage: 0.5 MG, UNK
     Route: 048
     Dates: start: 20121106, end: 20121109

REACTIONS (1)
  - Nausea [Recovered/Resolved]
